FAERS Safety Report 22152455 (Version 2)
Quarter: 2023Q2

REPORT INFORMATION
  Report Type: Spontaneous
  Country: US (occurrence: US)
  Receive Date: 20230329
  Receipt Date: 20230405
  Transmission Date: 20230722
  Serious: No
  Sender: FDA-Public Use
  Company Number: US-Calliditas-2023CAL00302

PATIENT
  Age: 52 Year
  Sex: Female

DRUGS (16)
  1. TARPEYO [Suspect]
     Active Substance: BUDESONIDE
     Indication: IgA nephropathy
     Dosage: 16 MG (4 MG CAPSULES) ONCE DAILY
     Route: 048
     Dates: start: 20230310
  2. PRAVASTATIN [Concomitant]
     Active Substance: PRAVASTATIN
  3. ASPIRIN [Concomitant]
     Active Substance: ASPIRIN
  4. PROMETHAZINE [Concomitant]
     Active Substance: PROMETHAZINE HYDROCHLORIDE
  5. CHLORTHALIDONE [Concomitant]
     Active Substance: CHLORTHALIDONE
  6. COREG [Concomitant]
     Active Substance: CARVEDILOL
  7. NITROGLYCERIN [Concomitant]
     Active Substance: NITROGLYCERIN
  8. POLYETHYLENE GLYCOL, UNSPECIFIED [Concomitant]
     Active Substance: POLYETHYLENE GLYCOL, UNSPECIFIED
  9. OMEPRAZOLE [Concomitant]
     Active Substance: OMEPRAZOLE
  10. FARXIGA [Concomitant]
     Active Substance: DAPAGLIFLOZIN PROPANEDIOL
  11. FERROUS SULFATE [Concomitant]
     Active Substance: FERROUS SULFATE
  12. OZEMPIC [Concomitant]
     Active Substance: SEMAGLUTIDE
  13. SEMGLEE [INSULIN GLARGINE YFGN] [Concomitant]
  14. CHOLECALCIFEROL [Concomitant]
     Active Substance: CHOLECALCIFEROL
  15. SPIRONOLACTONE [Concomitant]
     Active Substance: SPIRONOLACTONE
  16. CELEXA [Concomitant]
     Active Substance: CITALOPRAM HYDROBROMIDE

REACTIONS (2)
  - Headache [Recovered/Resolved]
  - Hypertension [Recovered/Resolved]

NARRATIVE: CASE EVENT DATE: 20230312
